FAERS Safety Report 18617549 (Version 1)
Quarter: 2020Q4

REPORT INFORMATION
  Report Type: Spontaneous
  Country: US (occurrence: US)
  Receive Date: 20201214
  Receipt Date: 20201214
  Transmission Date: 20210114
  Serious: Yes (Death)
  Sender: FDA-Public Use
  Company Number: None

PATIENT
  Age: 83 Year
  Sex: Male

DRUGS (1)
  1. REVLIMID [Suspect]
     Active Substance: LENALIDOMIDE
     Indication: PLASMA CELL MYELOMA
     Route: 048
     Dates: start: 20190621, end: 20200721

REACTIONS (4)
  - Cardiac failure acute [None]
  - Blood loss anaemia [None]
  - Therapy interrupted [None]
  - Acute respiratory failure [None]

NARRATIVE: CASE EVENT DATE: 20191212
